FAERS Safety Report 23159755 (Version 1)
Quarter: 2023Q4

REPORT INFORMATION
  Report Type: Spontaneous
  Country: US (occurrence: US)
  Receive Date: 20231108
  Receipt Date: 20231108
  Transmission Date: 20240110
  Serious: Yes (Hospitalization, Other)
  Sender: FDA-Public Use
  Company Number: US-SAMSUNG BIOEPIS-SB-2023-29395

PATIENT
  Sex: Female

DRUGS (2)
  1. ADALIMUMAB [Suspect]
     Active Substance: ADALIMUMAB\ISOPROPYL ALCOHOL
     Indication: Crohn^s disease
     Dosage: UNKNOWN
     Route: 065
  2. ARIPIPRAZOLE [Suspect]
     Active Substance: ARIPIPRAZOLE
     Indication: Major depression
     Dosage: UNKNOWN
     Route: 065

REACTIONS (5)
  - Philadelphia positive acute lymphocytic leukaemia [Recovered/Resolved]
  - Febrile neutropenia [Unknown]
  - Enterococcal bacteraemia [Recovered/Resolved]
  - Enterococcal infection [Recovered/Resolved]
  - Vascular device infection [Recovered/Resolved]
